FAERS Safety Report 7841314 (Version 2)
Quarter: 2013Q2

REPORT INFORMATION
  Report Type: Spontaneous
  Country: US (occurrence: US)
  Receive Date: 20110304
  Receipt Date: 20130424
  Transmission Date: 20140414
  Serious: Yes (Hospitalization, Other)
  Sender: FDA-Public Use
  Company Number: US-PFIZER INC-2010021539

PATIENT
  Age: 40 Year
  Sex: Female
  Weight: 58 kg

DRUGS (23)
  1. DILANTIN [Suspect]
     Indication: CONVULSION
     Dosage: 100 MG, 3X/DAY
     Route: 048
     Dates: end: 200103
  2. DILANTIN KAPSEAL [Suspect]
     Dosage: 100MG AND/OR 30MG
     Route: 048
     Dates: start: 20010306
  3. TYLENOL [Concomitant]
     Indication: PAIN
     Dosage: 650 MG, AS NEEDED
     Route: 048
     Dates: start: 20010221, end: 20010401
  4. FEVERALL [Concomitant]
     Indication: PAIN
     Dosage: 650 MG, AS NEEDED
     Route: 054
     Dates: start: 20010221, end: 20010325
  5. TYLENOL W/CODEINE NO. 3 [Concomitant]
     Indication: PAIN
     Dosage: 30 MG, AS NEEDED
     Dates: start: 20010305, end: 20010308
  6. DULCOLAX [Concomitant]
     Indication: CONSTIPATION
     Dosage: 10 MG, AS NEEDED
     Route: 054
     Dates: start: 20010221, end: 20010401
  7. MILK OF MAGNESIA [Concomitant]
     Indication: CONSTIPATION
     Dosage: 30 ML, 2X/DAY
     Dates: start: 20010220, end: 20010401
  8. FLEET ENEMA [Concomitant]
     Indication: CONSTIPATION
     Dosage: AS NEEDED
     Route: 054
     Dates: start: 20010220, end: 20010401
  9. COLACE [Concomitant]
     Dosage: 100 MG, 2X/DAY
     Route: 048
     Dates: start: 20010221, end: 20010401
  10. ZANTAC [Concomitant]
     Dosage: 150 MG, 2X/DAY
     Route: 048
     Dates: start: 20010221, end: 20010401
  11. PREMARIN [Concomitant]
     Dosage: 0.625 MG, UNK
     Dates: start: 20010221, end: 20010323
  12. ZOFRAN [Concomitant]
     Indication: NAUSEA
     Dosage: 4 MG, AS NEEDED
     Route: 042
  13. PROPOFOL [Concomitant]
     Dosage: 500 MG, UNK
     Dates: start: 20010222, end: 20010324
  14. GLYCERIN [Concomitant]
     Dosage: UNK
     Route: 054
     Dates: start: 20010223, end: 20010326
  15. NIMOTOP [Concomitant]
     Dosage: 60 MG, EVERY 4 HRS
     Route: 048
     Dates: start: 20010222, end: 20010323
  16. HUMULIN R [Concomitant]
     Dosage: UNK
     Dates: start: 20010223, end: 20010401
  17. NOVOLIN R [Concomitant]
     Dosage: UNK
     Dates: start: 20010223, end: 20010401
  18. ROCEPHIN [Concomitant]
     Dosage: 1000 MG, UNK
     Route: 042
     Dates: start: 20010223, end: 20010302
  19. MONISTAT 7 [Concomitant]
     Dosage: 100 MG, 1X/DAY
     Route: 067
     Dates: start: 20010224, end: 20010303
  20. HEPARIN SODIUM [Concomitant]
     Dosage: 0.5 ML, 2X/DAY
     Dates: start: 20010301, end: 20010401
  21. SENOKOT [Concomitant]
     Dosage: UNK
     Route: 048
     Dates: start: 20010302, end: 20010331
  22. DECADRON [Concomitant]
     Dosage: 6 MG, 4X/DAY
     Route: 048
     Dates: start: 20010221, end: 20010330
  23. PSYLLIUM [Concomitant]
     Dosage: TWICE DAILY
     Route: 048
     Dates: start: 20010221, end: 20010326

REACTIONS (1)
  - Stevens-Johnson syndrome [Recovered/Resolved]
